FAERS Safety Report 7274128-5 (Version None)
Quarter: 2011Q1

REPORT INFORMATION
  Report Type: 
  Country: None (occurrence: None)
  Receive Date: 20110204
  Receipt Date: 20091202
  Transmission Date: 20110831
  Serious: No
  Sender: FDA-Public Use
  Company Number: US-BIOGENIDEC-2009BI040221

PATIENT
  Sex: Female

DRUGS (2)
  1. TYSABRI [Suspect]
     Indication: MULTIPLE SCLEROSIS
     Route: 042
     Dates: end: 20050101
  2. TYSABRI [Suspect]
     Route: 042
     Dates: start: 20070103

REACTIONS (9)
  - PNEUMONIA [None]
  - COUGH [None]
  - ASTHMA [None]
  - MUSCULOSKELETAL DISORDER [None]
  - UPPER RESPIRATORY TRACT INFECTION [None]
  - COORDINATION ABNORMAL [None]
  - RESPIRATORY DISORDER [None]
  - MULTIPLE SCLEROSIS [None]
  - BRONCHITIS [None]
